FAERS Safety Report 5441884-8 (Version None)
Quarter: 2007Q3

REPORT INFORMATION
  Report Type: 
  Country: None (occurrence: None)
  Receive Date: 20070904
  Receipt Date: 20070824
  Transmission Date: 20080115
  Serious: Yes (Hospitalization)
  Sender: FDA-Public Use
  Company Number: FR-JNJFOC-20070804879

PATIENT
  Age: 58 Year
  Sex: Male

DRUGS (5)
  1. OFLOCET [Suspect]
     Indication: DRUG USE FOR UNKNOWN INDICATION
     Route: 065
  2. PREVISCAN [Suspect]
     Indication: VENOUS THROMBOSIS
     Route: 048
  3. SKENAN [Concomitant]
     Route: 048
  4. STILNOX [Concomitant]
     Route: 048
  5. IMOVANE [Concomitant]
     Route: 048

REACTIONS (4)
  - ANAEMIA [None]
  - HAEMOPTYSIS [None]
  - OVERDOSE [None]
  - PROTEIN TOTAL DECREASED [None]
